APPROVED DRUG PRODUCT: SOTALOL HYDROCHLORIDE
Active Ingredient: SOTALOL HYDROCHLORIDE
Strength: 120MG
Dosage Form/Route: TABLET;ORAL
Application: A075515 | Product #004
Applicant: SUN PHARMACEUTICAL INDUSTRIES INC
Approved: Oct 15, 2001 | RLD: No | RS: No | Type: DISCN